FAERS Safety Report 10953245 (Version 1)
Quarter: 2015Q1

REPORT INFORMATION
  Report Type: Spontaneous
  Country: DE (occurrence: None)
  Receive Date: 20150323
  Receipt Date: 20150323
  Transmission Date: 20150721
  Serious: Yes (Life-Threatening, Hospitalization)
  Sender: FDA-Public Use
  Company Number: DE-LHC-2015035

PATIENT
  Age: 70 Year
  Sex: Female

DRUGS (1)
  1. CONOXIA (OXYGEN) (GAS FOR INHALATION) (VERUM) [Suspect]
     Active Substance: OXYGEN
     Indication: CHRONIC OBSTRUCTIVE PULMONARY DISEASE
     Dosage: 2-4 L/MIN SINCE 09/MAY/2014, INHALATION
     Route: 055
     Dates: start: 20100209

REACTIONS (2)
  - Burns third degree [None]
  - Injury associated with device [None]

NARRATIVE: CASE EVENT DATE: 20150316
